FAERS Safety Report 18651200 (Version 2)
Quarter: 2020Q4

REPORT INFORMATION
  Report Type: Spontaneous
  Country: US (occurrence: US)
  Receive Date: 20201223
  Receipt Date: 20201230
  Transmission Date: 20210114
  Serious: Yes (Other)
  Sender: FDA-Public Use
  Company Number: US-ROCHE-2735400

PATIENT
  Age: 70 Year
  Sex: Male
  Weight: 110.78 kg

DRUGS (11)
  1. VENCLEXTA [Suspect]
     Active Substance: VENETOCLAX
     Indication: CHRONIC LYMPHOCYTIC LEUKAEMIA
     Dosage: FOUR 100 MG TABLETS FOR ONE 400 MG DOSE. ;ONGOING: YES
     Route: 048
  2. VENCLEXTA [Suspect]
     Active Substance: VENETOCLAX
     Dosage: FOR 7 DAYS, THEN TITRATE PER PACKAGE DIRECTIONS, DISCONTINUED.
     Route: 048
  3. PREDNISONE. [Suspect]
     Active Substance: PREDNISONE
     Indication: PREMEDICATION
     Route: 042
  4. POTASSIUM CHLORIDE. [Concomitant]
     Active Substance: POTASSIUM CHLORIDE
  5. COLCHICINE. [Concomitant]
     Active Substance: COLCHICINE
     Indication: GOUT
     Route: 048
     Dates: start: 202011
  6. BENADRYL [Concomitant]
     Active Substance: DIPHENHYDRAMINE HYDROCHLORIDE
  7. CLARITINE [Concomitant]
     Active Substance: LORATADINE
  8. ALLOPURINOL. [Concomitant]
     Active Substance: ALLOPURINOL
  9. RITUXAN [Suspect]
     Active Substance: RITUXIMAB
     Indication: CHRONIC LYMPHOCYTIC LEUKAEMIA
     Route: 042
  10. NORVASC [Concomitant]
     Active Substance: AMLODIPINE BESYLATE
     Indication: HYPERTENSION
     Route: 048
     Dates: start: 1988
  11. LUTEIN [Concomitant]
     Active Substance: LUTEIN
     Dates: start: 2010

REACTIONS (7)
  - Atrial fibrillation [Unknown]
  - Pain in extremity [Recovered/Resolved]
  - Impetigo [Recovered/Resolved]
  - Blood potassium decreased [Not Recovered/Not Resolved]
  - Blood glucose increased [Unknown]
  - Limb discomfort [Recovered/Resolved]
  - Ligament sprain [Recovered/Resolved]

NARRATIVE: CASE EVENT DATE: 2014
